FAERS Safety Report 16358625 (Version 1)
Quarter: 2019Q2

REPORT INFORMATION
  Report Type: Spontaneous
  Country: ES (occurrence: ES)
  Receive Date: 20190527
  Receipt Date: 20190527
  Transmission Date: 20190711
  Serious: Yes (Other)
  Sender: FDA-Public Use
  Company Number: ES-ELI_LILLY_AND_COMPANY-ES201905007013

PATIENT
  Age: 82 Year
  Sex: Female
  Weight: 53.8 kg

DRUGS (4)
  1. FORSTEO 250UG/ML [Suspect]
     Active Substance: TERIPARATIDE
     Indication: PATHOLOGICAL FRACTURE
     Dosage: 20 MCG/24 HORAS
     Route: 058
     Dates: start: 20181207, end: 20190225
  2. BENICAR [Concomitant]
     Active Substance: OLMESARTAN MEDOXOMIL
     Indication: HYPERTENSION
     Dosage: 1 COMPRIMIDO CADA DIA
     Route: 048
     Dates: start: 20190208
  3. HIDROFEROL [Suspect]
     Active Substance: CALCIFEDIOL
     Indication: PATHOLOGICAL FRACTURE
     Dosage: 1 CAPSULA CADA DIA
     Route: 048
     Dates: start: 20181207, end: 20190208
  4. IXIA PLUS [Concomitant]
     Active Substance: HYDROCHLOROTHIAZIDE\OLMESARTAN MEDOXOMIL
     Indication: HYPERTENSION
     Dosage: 1 COMPRIMIDO CADA DIA
     Route: 048
     Dates: start: 20190104, end: 20190208

REACTIONS (2)
  - Hypercalcaemia [Recovered/Resolved]
  - Hypervitaminosis D [Recovering/Resolving]

NARRATIVE: CASE EVENT DATE: 20190130
